FAERS Safety Report 11574328 (Version 1)
Quarter: 2015Q3

REPORT INFORMATION
  Report Type: Spontaneous
  Country: US (occurrence: None)
  Receive Date: 20150928
  Receipt Date: 20150928
  Transmission Date: 20151125
  Serious: Yes (Life-Threatening, Hospitalization, Disabling, Other)
  Sender: FDA-Public Use
  Company Number: None

PATIENT
  Age: 53 Year
  Sex: Female
  Weight: 65.77 kg

DRUGS (1)
  1. MILLIPRED [Suspect]
     Active Substance: PREDNISOLONE
     Indication: ADDISON^S DISEASE
     Route: 048
     Dates: start: 20060710, end: 20130315

REACTIONS (6)
  - Abdominal discomfort [None]
  - Shock [None]
  - Adrenocortical insufficiency acute [None]
  - Liver disorder [None]
  - Fungal infection [None]
  - Skin striae [None]

NARRATIVE: CASE EVENT DATE: 20141015
